FAERS Safety Report 7965080 (Version 2)
Quarter: 2012Q4

REPORT INFORMATION
  Report Type: Report from Study
  Country: US (occurrence: US)
  Receive Date: 20110527
  Receipt Date: 20120831
  Transmission Date: 20130627
  Serious: Yes (Death, Hospitalization, Other)
  Sender: FDA-Public Use
  Company Number: US-UCBSA-028872

PATIENT
  Age: 54 Year
  Sex: Male
  Weight: 94.1 kg

DRUGS (11)
  1. CIMZIA [Suspect]
     Indication: CROHN^S DISEASE
     Route: 058
     Dates: start: 20091113
  2. 6 MP [Concomitant]
     Indication: CROHN^S DISEASE
     Route: 048
     Dates: start: 2005, end: 20110316
  3. CHOLESTYRAMINE [Concomitant]
  4. PERCOCET [Concomitant]
     Dosage: 5/325 1
  5. CHEMOTHERAPY [Concomitant]
  6. OXYCONTIN [Concomitant]
     Dosage: 20
  7. OXYCODONE [Concomitant]
  8. ATIVAN [Concomitant]
  9. ROXANOL [Concomitant]
  10. TEMODAR [Concomitant]
     Indication: CHEMOTHERAPY
     Dates: start: 20091223
  11. TEMODAR [Concomitant]
     Indication: CHEMOTHERAPY

REACTIONS (1)
  - Metastatic malignant melanoma [Fatal]
